FAERS Safety Report 20752006 (Version 1)
Quarter: 2022Q2

REPORT INFORMATION
  Report Type: Spontaneous
  Country: CA (occurrence: CA)
  Receive Date: 20220426
  Receipt Date: 20220426
  Transmission Date: 20220721
  Serious: Yes (Life-Threatening)
  Sender: FDA-Public Use
  Company Number: CA-NAPPMUNDI-GBR-2022-0097216

PATIENT
  Sex: Female

DRUGS (1)
  1. MORPHINE SULFATE [Suspect]
     Active Substance: MORPHINE SULFATE
     Indication: Pain
     Dosage: 30 MILLIGRAM, 3 EVERY 1 DAYS
     Route: 065

REACTIONS (2)
  - Swelling [Unknown]
  - Rash [Unknown]
